FAERS Safety Report 4886254-6 (Version None)
Quarter: 2006Q1

REPORT INFORMATION
  Report Type: 
  Country: None (occurrence: None)
  Receive Date: 20060118
  Receipt Date: 20060118
  Transmission Date: 20060701
  Serious: Yes (Hospitalization)
  Sender: FDA-Public Use
  Company Number: None

PATIENT
  Age: 52 Year
  Sex: Female
  Weight: 75.3 kg

DRUGS (4)
  1. ERBITUX [Suspect]
     Indication: TONSIL CANCER
     Dosage: 250   ONCE/WEEK   IV DRIP
     Route: 041
     Dates: start: 20051122, end: 20060117
  2. CARBOPLATIN [Concomitant]
  3. PACLITXAEL [Concomitant]
  4. RADIATION THERAPY [Concomitant]

REACTIONS (10)
  - CONDITION AGGRAVATED [None]
  - COUGH [None]
  - DYSPNOEA [None]
  - LEUKOPENIA [None]
  - NECK MASS [None]
  - NECROSIS [None]
  - NEUTROPENIA [None]
  - PAIN [None]
  - RASH [None]
  - VOMITING [None]
